FAERS Safety Report 6483232-0 (Version None)
Quarter: 2009Q4

REPORT INFORMATION
  Report Type: 
  Country: None (occurrence: None)
  Receive Date: 20091209
  Receipt Date: 20090423
  Transmission Date: 20100525
  Serious: No
  Sender: FDA-Public Use
  Company Number: US-AMGEN-KDL344221

PATIENT
  Sex: Female

DRUGS (2)
  1. ENBREL [Suspect]
     Indication: PSORIASIS
     Route: 058
     Dates: start: 20090402
  2. CYCLOSPORINE [Concomitant]
     Route: 048
     Dates: start: 20090309

REACTIONS (1)
  - INJECTION SITE PAIN [None]
